FAERS Safety Report 18817592 (Version 1)
Quarter: 2021Q1

REPORT INFORMATION
  Report Type: Spontaneous
  Country: GB (occurrence: GB)
  Receive Date: 20210201
  Receipt Date: 20210201
  Transmission Date: 20210419
  Serious: Yes (Other)
  Sender: FDA-Public Use
  Company Number: GB-UCBSA-2021004249

PATIENT
  Age: 85 Year
  Sex: Male

DRUGS (11)
  1. DOMPERIDONE [Concomitant]
     Active Substance: DOMPERIDONE
     Indication: HICCUPS
  2. CARBAMAZEPINE. [Concomitant]
     Active Substance: CARBAMAZEPINE
     Indication: HICCUPS
  3. OMEPRAZOLE. [Concomitant]
     Active Substance: OMEPRAZOLE
     Indication: HICCUPS
  4. PROCHLORPERAZINE. [Concomitant]
     Active Substance: PROCHLORPERAZINE
     Indication: HICCUPS
  5. LANSOPRAZOLE. [Concomitant]
     Active Substance: LANSOPRAZOLE
     Indication: HICCUPS
  6. LEVETIRACETAM. [Suspect]
     Active Substance: LEVETIRACETAM
     Indication: HICCUPS
     Dosage: UNKNOWN
  7. BACLOFEN. [Concomitant]
     Active Substance: BACLOFEN
     Indication: HICCUPS
  8. CHLORPROMAZINE. [Concomitant]
     Active Substance: CHLORPROMAZINE
     Indication: HICCUPS
  9. GABAPENTIN. [Concomitant]
     Active Substance: GABAPENTIN
     Indication: HICCUPS
  10. METOCLOPRAMIDE. [Concomitant]
     Active Substance: METOCLOPRAMIDE
     Indication: HICCUPS
  11. MAALOX PLUS [ALGELDRATE;DIMETICONE;MAGNESIUM HYDROXIDE] [Concomitant]
     Indication: HICCUPS

REACTIONS (3)
  - Drug ineffective for unapproved indication [Unknown]
  - Malaise [Unknown]
  - Product use in unapproved indication [Unknown]
